FAERS Safety Report 7756608-9 (Version None)
Quarter: 2011Q3

REPORT INFORMATION
  Report Type: 
  Country: None (occurrence: None)
  Receive Date: 20110916
  Receipt Date: 20110910
  Transmission Date: 20111222
  Serious: Yes (Death, Hospitalization)
  Sender: FDA-Public Use
  Company Number: PHHY2011US81183

PATIENT
  Age: 38 Year
  Sex: Female

DRUGS (8)
  1. CYCLOSPORINE [Suspect]
     Indication: BONE MARROW TRANSPLANT
     Dosage: UNK UKN, UNK
     Route: 042
  2. CYCLOPHOSPHAMIDE [Concomitant]
  3. NEORAL [Suspect]
     Indication: PROPHYLAXIS AGAINST GRAFT VERSUS HOST DISEASE
     Dosage: 5000 MG,
     Route: 048
  4. METHOTREXATE [Concomitant]
  5. CYCLOSPORINE [Suspect]
     Indication: PROPHYLAXIS AGAINST GRAFT VERSUS HOST DISEASE
  6. IRRADIATION [Concomitant]
  7. NEORAL [Suspect]
     Indication: BONE MARROW TRANSPLANT
  8. METHYLPREDNISOLONE [Concomitant]
     Dosage: 250 MG, BID

REACTIONS (11)
  - IDIOPATHIC PNEUMONIA SYNDROME [None]
  - BLOOD BILIRUBIN INCREASED [None]
  - ASPIRATION [None]
  - OXYGEN CONSUMPTION INCREASED [None]
  - ACUTE RESPIRATORY DISTRESS SYNDROME [None]
  - PNEUMOMEDIASTINUM [None]
  - CLONUS [None]
  - CONVULSION [None]
  - LUNG INFILTRATION [None]
  - IMMUNOSUPPRESSANT DRUG LEVEL INCREASED [None]
  - OVERDOSE [None]
